FAERS Safety Report 23249886 (Version 1)
Quarter: 2023Q4

REPORT INFORMATION
  Report Type: Report from Study
  Country: AR (occurrence: AR)
  Receive Date: 20231201
  Receipt Date: 20231201
  Transmission Date: 20240110
  Serious: Yes (Other)
  Sender: FDA-Public Use
  Company Number: AR-JNJFOC-20230934765

PATIENT
  Age: 75 Year
  Sex: Female
  Weight: 69 kg

DRUGS (1)
  1. SIMPONI [Suspect]
     Active Substance: GOLIMUMAB
     Indication: Rheumatoid arthritis
     Route: 058
     Dates: start: 20230327

REACTIONS (10)
  - Gastrointestinal haemorrhage [Unknown]
  - Epistaxis [Unknown]
  - Gastritis [Unknown]
  - Arthralgia [Unknown]
  - Headache [Unknown]
  - Bone pain [Unknown]
  - Eye pain [Unknown]
  - Vision blurred [Unknown]
  - Back pain [Unknown]
  - Pain in extremity [Unknown]

NARRATIVE: CASE EVENT DATE: 20230914
